FAERS Safety Report 21448018 (Version 1)
Quarter: 2022Q4

REPORT INFORMATION
  Report Type: Spontaneous
  Country: DE (occurrence: DE)
  Receive Date: 20221012
  Receipt Date: 20221012
  Transmission Date: 20230113
  Serious: Yes (Hospitalization)
  Sender: FDA-Public Use
  Company Number: DE-ADRED-05247-02

PATIENT
  Age: 90 Year
  Sex: Female
  Weight: 57.3 kg

DRUGS (7)
  1. LORAZEPAM [Suspect]
     Active Substance: LORAZEPAM
     Indication: Product used for unknown indication
     Dosage: 1 DOSAGE FORMS DAILY; 0.5 MG, 0-0-1-0, UNIT DOSE : 1 DF , FREQUENCY : OD, MEDICATION ERRORS
  2. TAPENTADOL [Suspect]
     Active Substance: TAPENTADOL
     Indication: Product used for unknown indication
     Dosage: 2 DOSAGE FORMS DAILY; 50 MG, 1-0-1-0, UNIT DOSE : 1 DF , FREQUENCY : BD, MEDICATION ERRORS
  3. TORSEMIDE [Concomitant]
     Active Substance: TORSEMIDE
     Indication: Product used for unknown indication
     Dosage: 4 DOSAGE FORMS DAILY; 5 MG, 2-2-0-0, UNIT DOSE : 2 DF , FREQUENCY : BD
  4. PANTOPRAZOLE [Concomitant]
     Active Substance: PANTOPRAZOLE
     Indication: Product used for unknown indication
     Dosage: 1 DOSAGE FORMS DAILY; 40 MG, 1-0-0-0, UNIT DOSE : 1 DF , FREQUENCY : OD
  5. ASPIRIN [Concomitant]
     Active Substance: ASPIRIN
     Indication: Product used for unknown indication
     Dosage: 1 DOSAGE FORMS DAILY; 100 MG, 0-1-0-0, UNIT DOSE : 1 DF , FREQUENCY : OD
  6. SICCAPROTECT [Concomitant]
     Indication: Product used for unknown indication
     Dosage: 3 DOSAGE FORMS DAILY; 1-1-1-0, DROP, UNIT DOSE : 1 DF , FREQUENCY : 3 TIMES A DAY
  7. Thiamine (vitamin B1) [Concomitant]
     Indication: Product used for unknown indication
     Dosage: 1 DOSAGE FORMS DAILY; 200 MG, 1-0-0-0, UNIT DOSE : 1 DF , FREQUENCY : OD

REACTIONS (4)
  - Depressed mood [Unknown]
  - Dizziness [Unknown]
  - Product prescribing error [Unknown]
  - Product prescribing error [Unknown]
